FAERS Safety Report 5707860-2 (Version None)
Quarter: 2008Q2

REPORT INFORMATION
  Report Type: 
  Country: None (occurrence: None)
  Receive Date: 20080414
  Receipt Date: 20080402
  Transmission Date: 20081010
  Serious: Yes (Other)
  Sender: FDA-Public Use
  Company Number: 100#08#2008-01913

PATIENT
  Age: 66 Year
  Sex: Male

DRUGS (2)
  1. CACLIUM FOLINATE (CALCIUM FOLINATE) [Suspect]
     Indication: COLON CANCER STAGE III
     Dosage: 35 MG ONCE
     Route: 042
  2. FLUOROURACIL [Suspect]
     Indication: COLON CANCER STAGE III
     Dosage: 750 MG ONCE WEEKLY
     Route: 040

REACTIONS (2)
  - CHOLESTASIS [None]
  - LIVER INJURY [None]
